FAERS Safety Report 6440894-1 (Version None)
Quarter: 2009Q4

REPORT INFORMATION
  Report Type: 
  Country: None (occurrence: None)
  Receive Date: 20091116
  Receipt Date: 20091103
  Transmission Date: 20100525
  Serious: Yes (Hospitalization)
  Sender: FDA-Public Use
  Company Number: PHHY2009NL46747

PATIENT
  Sex: Male
  Weight: 81 kg

DRUGS (5)
  1. ALISKIREN ALI+TAB [Suspect]
     Indication: HYPERTENSION
     Dosage: 150 MG, DAILY
     Route: 048
     Dates: start: 20090114, end: 20091020
  2. NEXIUM [Concomitant]
     Indication: GASTROINTESTINAL DISORDER
     Dosage: 1X20
     Dates: start: 20091031
  3. VANCOMYCIN [Concomitant]
     Indication: SEPSIS
     Dosage: 3X 1 G
     Dates: start: 20091023
  4. ALDACTONE [Concomitant]
     Indication: CARDIAC FAILURE
     Dosage: 1X 25
     Dates: start: 20091028
  5. MEROPENEM [Concomitant]
     Indication: SEPSIS
     Dosage: 3X 1 G
     Dates: start: 20091031

REACTIONS (4)
  - ABDOMINAL OPERATION [None]
  - GASTRIC CANCER [None]
  - SEPSIS [None]
  - SUTURE RELATED COMPLICATION [None]
